FAERS Safety Report 6084963-7 (Version None)
Quarter: 2009Q1

REPORT INFORMATION
  Report Type: 
  Country: None (occurrence: None)
  Receive Date: 20090220
  Receipt Date: 20090211
  Transmission Date: 20090719
  Serious: Yes (Other)
  Sender: FDA-Public Use
  Company Number: KZ-JNJFOC-20090203487

PATIENT
  Age: 4 Decade
  Sex: Female
  Weight: 65 kg

DRUGS (2)
  1. RISPOLEPT [Suspect]
     Indication: PSYCHOTIC DISORDER
     Route: 048
  2. AZALEPTINE [Concomitant]
     Route: 065

REACTIONS (3)
  - HYPERTONIA [None]
  - PSYCHOTIC DISORDER [None]
  - SALIVARY HYPERSECRETION [None]
